FAERS Safety Report 10252159 (Version 2)
Quarter: 2015Q1

REPORT INFORMATION
  Report Type: Spontaneous
  Country: IT (occurrence: IT)
  Receive Date: 20140623
  Receipt Date: 20150311
  Transmission Date: 20150720
  Serious: Yes (Other)
  Sender: FDA-Public Use
  Company Number: IT-RANBAXY-2014R1-82652

PATIENT
  Age: 34 Year
  Sex: Male

DRUGS (3)
  1. TOPIRAMATE. [Suspect]
     Active Substance: TOPIRAMATE
     Indication: TEMPORAL LOBE EPILEPSY
     Dosage: 50 MG, DAILY
     Route: 065
  2. TOPIRAMATE. [Suspect]
     Active Substance: TOPIRAMATE
     Indication: TEMPORAL LOBE EPILEPSY
     Dosage: 250 MG, DAILY
     Route: 065
  3. CARBAMAZEPINE. [Concomitant]
     Active Substance: CARBAMAZEPINE
     Indication: TEMPORAL LOBE EPILEPSY
     Dosage: UP TO 1200 MG, DAILY
     Route: 065

REACTIONS (1)
  - Periodic limb movement disorder [Recovering/Resolving]
